FAERS Safety Report 14431889 (Version 1)
Quarter: 2018Q1

REPORT INFORMATION
  Report Type: Spontaneous
  Country: DE (occurrence: DE)
  Receive Date: 20180124
  Receipt Date: 20180124
  Transmission Date: 20180509
  Serious: Yes (Death, Hospitalization)
  Sender: FDA-Public Use
  Company Number: DE-WEST-WARD PHARMACEUTICALS CORP.-DE-H14001-18-00361

PATIENT
  Sex: Female
  Weight: 105 kg

DRUGS (4)
  1. AFINITOR [Suspect]
     Active Substance: EVEROLIMUS
     Indication: BREAST CANCER METASTATIC
     Dosage: 10 MG, QD
     Route: 048
     Dates: start: 20130403, end: 20130429
  2. EXEMESTANE. [Suspect]
     Active Substance: EXEMESTANE
     Indication: BREAST CANCER METASTATIC
     Dosage: 25 MG, QD (PACKAGE OF 100 TABLETS)
     Route: 048
     Dates: start: 20130403, end: 20130429
  3. ZOMETA [Concomitant]
     Active Substance: ZOLEDRONIC ACID
     Indication: METASTASES TO BONE
     Dosage: 4 MG, EVERY 21 DAYS
     Route: 065
     Dates: start: 20130313, end: 20160223
  4. FASLODEX [Concomitant]
     Active Substance: FULVESTRANT
     Indication: PRODUCT USED FOR UNKNOWN INDICATION
     Dosage: 500 MG, INTAKE ON DAY 1, 14 AND 28; THEN EVERY TWENTY-EIGHT DAYS
     Route: 065
     Dates: start: 20130430

REACTIONS (8)
  - Pneumonia [Not Recovered/Not Resolved]
  - Infection [Unknown]
  - Malignant neoplasm progression [Fatal]
  - Metastases to lymph nodes [Fatal]
  - Breast cancer metastatic [Fatal]
  - Dyspnoea [Not Recovered/Not Resolved]
  - Metastases to lung [Fatal]
  - General physical health deterioration [Fatal]

NARRATIVE: CASE EVENT DATE: 20130918
